FAERS Safety Report 20843493 (Version 2)
Quarter: 2022Q2

REPORT INFORMATION
  Report Type: Spontaneous
  Country: JP (occurrence: JP)
  Receive Date: 20220518
  Receipt Date: 20220530
  Transmission Date: 20220721
  Serious: Yes (Hospitalization, Other)
  Sender: FDA-Public Use
  Company Number: JP-NBI-J202208488BIPI

PATIENT
  Age: 65 Year
  Sex: Male

DRUGS (2)
  1. IDARUCIZUMAB [Suspect]
     Active Substance: IDARUCIZUMAB
     Indication: Procoagulant therapy
     Route: 042
     Dates: start: 20220416, end: 20220416
  2. IDARUCIZUMAB [Suspect]
     Active Substance: IDARUCIZUMAB
     Route: 042
     Dates: start: 20220514, end: 20220514

REACTIONS (1)
  - Subdural haematoma [Unknown]

NARRATIVE: CASE EVENT DATE: 20220514
